FAERS Safety Report 9444141 (Version 1)
Quarter: 2013Q3

REPORT INFORMATION
  Report Type: Spontaneous
  Country: US (occurrence: None)
  Receive Date: 20130806
  Receipt Date: 20130806
  Transmission Date: 20140515
  Serious: Yes (Disabling)
  Sender: FDA-Public Use
  Company Number: None

PATIENT
  Age: 65 None
  Sex: Female

DRUGS (4)
  1. LISINOPRIL [Suspect]
     Indication: HYPERTENSION
     Route: 048
     Dates: start: 20130710, end: 20130731
  2. ASPIRIN [Concomitant]
  3. FISH OIL [Concomitant]
  4. MULTI VITAMIN [Concomitant]

REACTIONS (3)
  - Cough [None]
  - Confusional state [None]
  - Insomnia [None]
